FAERS Safety Report 25862929 (Version 2)
Quarter: 2025Q4

REPORT INFORMATION
  Report Type: Spontaneous
  Country: CA (occurrence: CA)
  Receive Date: 20250930
  Receipt Date: 20251009
  Transmission Date: 20260118
  Serious: Yes (Life-Threatening, Other)
  Sender: CELLTRION
  Company Number: CA-PFIZER INC-PV202500067654

PATIENT

DRUGS (1)
  1. INFLECTRA [Suspect]
     Active Substance: INFLIXIMAB-DYYB
     Indication: Colitis ulcerative
     Dosage: 10 MG/KG, EVERY 4 WEEKS
     Route: 042

REACTIONS (5)
  - Maternal exposure during pregnancy [Unknown]
  - Embolism [Not Recovered/Not Resolved]
  - Phlebitis [Not Recovered/Not Resolved]
  - Hormone level abnormal [Not Recovered/Not Resolved]
  - Pre-eclampsia [Not Recovered/Not Resolved]

NARRATIVE: CASE EVENT DATE: 20250101
